FAERS Safety Report 7008416-4 (Version None)
Quarter: 2010Q3

REPORT INFORMATION
  Report Type: 
  Country: None (occurrence: None)
  Receive Date: 20100922
  Receipt Date: 20100913
  Transmission Date: 20110219
  Serious: Yes (Other)
  Sender: FDA-Public Use
  Company Number: D0067311A

PATIENT
  Sex: Male

DRUGS (6)
  1. AVODART [Suspect]
     Dosage: .5MG PER DAY
     Route: 048
     Dates: start: 20091218, end: 20100608
  2. CONCOR [Concomitant]
     Dosage: 1.25MG IN THE MORNING
     Route: 065
  3. TAMSULOSIN HCL [Concomitant]
     Dosage: .4MG PER DAY
     Route: 065
     Dates: start: 20051201
  4. PROSTAGUTT [Concomitant]
     Route: 065
  5. POLLEN EXTRACT [Concomitant]
     Dosage: 2CAP TWICE PER DAY
     Route: 048
  6. IODID [Concomitant]
     Route: 065

REACTIONS (17)
  - ABDOMINAL DISTENSION [None]
  - AZOOSPERMIA [None]
  - BLADDER SPASM [None]
  - DIARRHOEA [None]
  - DYSGEUSIA [None]
  - ERECTILE DYSFUNCTION [None]
  - EXTRASYSTOLES [None]
  - FLATULENCE [None]
  - GASTROINTESTINAL HYPOMOTILITY [None]
  - HAIR GROWTH ABNORMAL [None]
  - HEPATIC PAIN [None]
  - LIBIDO DECREASED [None]
  - MICTURITION DISORDER [None]
  - PROSTATITIS [None]
  - RECTAL SPASM [None]
  - SKIN IRRITATION [None]
  - SOFT TISSUE DISORDER [None]
